FAERS Safety Report 23718886 (Version 1)
Quarter: 2024Q2

REPORT INFORMATION
  Report Type: Spontaneous
  Country: CN (occurrence: CN)
  Receive Date: 20240408
  Receipt Date: 20240408
  Transmission Date: 20240715
  Serious: Yes (Other)
  Sender: FDA-Public Use
  Company Number: None

PATIENT
  Age: 52 Year
  Sex: Female
  Weight: 60 kg

DRUGS (2)
  1. CLINOMEL [Suspect]
     Active Substance: AMINO ACIDS\DEXTROSE\ELECTROLYTES NOS\SOYBEAN OIL
     Indication: Fluid replacement
     Dosage: (DOSAGE FORM: INJECTION) 1000 ML EACH TIME, ONCE DAILY
     Route: 041
     Dates: start: 20240327, end: 20240327
  2. CLINOMEL [Suspect]
     Active Substance: AMINO ACIDS\DEXTROSE\ELECTROLYTES NOS\SOYBEAN OIL
     Indication: Fasting

REACTIONS (2)
  - Cutaneous vasculitis [Recovering/Resolving]
  - Skin irritation [Recovering/Resolving]

NARRATIVE: CASE EVENT DATE: 20240327
